FAERS Safety Report 11860571 (Version 2)
Quarter: 2017Q1

REPORT INFORMATION
  Report Type: Spontaneous
  Country: US (occurrence: US)
  Receive Date: 20151222
  Receipt Date: 20170227
  Transmission Date: 20170428
  Serious: Yes (Other)
  Sender: FDA-Public Use
  Company Number: US-ELI_LILLY_AND_COMPANY-US201512006201

PATIENT
  Sex: Female

DRUGS (8)
  1. CYMBALTA [Suspect]
     Active Substance: DULOXETINE HYDROCHLORIDE
     Dosage: 120 MG, UNKNOWN
     Route: 065
  2. CYMBALTA [Suspect]
     Active Substance: DULOXETINE HYDROCHLORIDE
     Indication: PRODUCT USED FOR UNKNOWN INDICATION
     Dosage: UNK, UNKNOWN
     Route: 065
     Dates: start: 201107
  3. CYMBALTA [Suspect]
     Active Substance: DULOXETINE HYDROCHLORIDE
     Dosage: 60 MG, AT NIGHT
     Route: 065
  4. ZOLPIDEM [Concomitant]
     Active Substance: ZOLPIDEM\ZOLPIDEM TARTRATE
     Dosage: 10 MG, UNKNOWN
     Route: 065
  5. CYMBALTA [Suspect]
     Active Substance: DULOXETINE HYDROCHLORIDE
     Dosage: 90 MG, UNKNOWN
     Route: 065
  6. TRAMADOL. [Concomitant]
     Active Substance: TRAMADOL
     Dosage: 50 MG, BID
     Route: 065
  7. CYMBALTA [Suspect]
     Active Substance: DULOXETINE HYDROCHLORIDE
     Dosage: 30 MG, UNKNOWN
     Route: 065
     Dates: end: 201202
  8. FLEXERIL [Concomitant]
     Active Substance: CYCLOBENZAPRINE HYDROCHLORIDE
     Dosage: 10 MG, PRN
     Route: 065

REACTIONS (35)
  - Hypophagia [Unknown]
  - Hyperhidrosis [Unknown]
  - Feeling abnormal [Unknown]
  - Depression [Unknown]
  - Pollakiuria [Unknown]
  - Ovarian cyst [Unknown]
  - Sensory disturbance [Unknown]
  - Drug withdrawal syndrome [Unknown]
  - Tinnitus [Unknown]
  - Myositis [Unknown]
  - Abdominal discomfort [Unknown]
  - Nausea [Unknown]
  - Anxiety [Unknown]
  - Bladder discomfort [Unknown]
  - Dizziness [Unknown]
  - Irritability [Unknown]
  - Seizure [Unknown]
  - Pain [Unknown]
  - Lethargy [Unknown]
  - Headache [Unknown]
  - Insomnia [Unknown]
  - Vertigo [Unknown]
  - Tendonitis [Unknown]
  - Suicidal ideation [Unknown]
  - Diarrhoea [Unknown]
  - Agitation [Unknown]
  - Myalgia [Unknown]
  - Migraine [Unknown]
  - Nightmare [Unknown]
  - Fatigue [Unknown]
  - Paraesthesia [Unknown]
  - Vomiting [Unknown]
  - Dehydration [Unknown]
  - Malaise [Unknown]
  - Burning sensation [Unknown]
